FAERS Safety Report 18376668 (Version 1)
Quarter: 2020Q4

REPORT INFORMATION
  Report Type: Spontaneous
  Country: US (occurrence: US)
  Receive Date: 20201009
  Receipt Date: 20201009
  Transmission Date: 20210114
  Serious: Yes (Hospitalization)
  Sender: FDA-Public Use
  Company Number: None

PATIENT
  Sex: Female

DRUGS (6)
  1. MELOXICAM. [Concomitant]
     Active Substance: MELOXICAM
  2. NASONEX [Concomitant]
     Active Substance: MOMETASONE FUROATE
  3. HUMIRA [Suspect]
     Active Substance: ADALIMUMAB
     Indication: PSORIATIC ARTHROPATHY
     Route: 058
     Dates: start: 20200309
  4. METHOCARBAM [Concomitant]
     Active Substance: METHOCARBAMOL
  5. IPRATROPIUM [Concomitant]
     Active Substance: IPRATROPIUM
  6. MELANTONIN [Concomitant]

REACTIONS (2)
  - Therapy interrupted [None]
  - Surgery [None]
